FAERS Safety Report 20668341 (Version 9)
Quarter: 2023Q4

REPORT INFORMATION
  Report Type: Report from Study
  Country: JP (occurrence: JP)
  Receive Date: 20220404
  Receipt Date: 20231113
  Transmission Date: 20240109
  Serious: Yes (Hospitalization)
  Sender: FDA-Public Use
  Company Number: JP-TAKEDA-2022TJP012404

PATIENT

DRUGS (15)
  1. CABOZANTINIB [Suspect]
     Active Substance: CABOZANTINIB
     Indication: Renal cell carcinoma
     Dosage: 60 MILLIGRAM, QD
     Route: 048
     Dates: start: 20211222, end: 20220105
  2. CABOZANTINIB [Suspect]
     Active Substance: CABOZANTINIB
     Indication: Metastases to bone
     Dosage: 40 MILLIGRAM, QD
     Route: 048
     Dates: start: 20220106, end: 20220119
  3. CABOZANTINIB [Suspect]
     Active Substance: CABOZANTINIB
     Indication: Metastases to lung
     Dosage: 20 MILLIGRAM, QD
     Route: 048
     Dates: start: 20220322, end: 20220328
  4. CABOZANTINIB [Suspect]
     Active Substance: CABOZANTINIB
     Indication: Metastases to adrenals
     Dosage: 20 MILLIGRAM, QOD
     Route: 048
     Dates: start: 20220419
  5. DENOSUMAB [Concomitant]
     Active Substance: DENOSUMAB
     Indication: Renal cell carcinoma
     Dosage: 120 MILLIGRAM, Q4WEEKS
     Route: 058
     Dates: start: 20210610
  6. DENOSUMAB [Concomitant]
     Active Substance: DENOSUMAB
     Indication: Metastases to bone
  7. ASPIRIN\LANSOPRAZOLE [Concomitant]
     Active Substance: ASPIRIN\LANSOPRAZOLE
     Indication: Product used for unknown indication
     Dosage: 1 DOSAGE FORM, QD
     Route: 048
     Dates: start: 202006
  8. EZETIMIBE\ROSUVASTATIN [Concomitant]
     Active Substance: EZETIMIBE\ROSUVASTATIN
     Indication: Hyperlipidaemia
     Dosage: 1 DOSAGE FORM, QD
     Route: 048
     Dates: start: 202006
  9. CALCIUM CARBONATE\CHOLECALCIFEROL\MAGNESIUM CARBONATE [Concomitant]
     Active Substance: CALCIUM CARBONATE\CHOLECALCIFEROL\MAGNESIUM CARBONATE
     Indication: Prophylaxis
     Dosage: 2 DOSAGE FORM, QD
     Route: 048
     Dates: start: 20210706
  10. MIYA-BM [Concomitant]
     Active Substance: CLOSTRIDIUM BUTYRICUM SPORES STRAIN M-55
     Indication: Gastrointestinal disorder
     Dosage: 1 DOSAGE FORM, TID
     Route: 048
     Dates: start: 20211225
  11. ARTZ DISPO [Concomitant]
     Indication: Osteoarthritis
     Dosage: 25 MILLIGRAM, Q4WEEKS
     Route: 013
     Dates: start: 20210602
  12. Rocain [Concomitant]
     Indication: Osteoarthritis
     Dosage: 25 MILLIGRAM, Q4WEEKS
     Route: 013
     Dates: start: 20220119
  13. FELBINAC [Concomitant]
     Active Substance: FELBINAC
     Indication: Analgesic therapy
     Dosage: UNK
     Route: 062
     Dates: start: 20211020
  14. BETAMETHASONE DIPROPIONATE [Concomitant]
     Active Substance: BETAMETHASONE DIPROPIONATE
     Indication: Rash
     Dosage: UNK UNK, BID
     Route: 062
     Dates: start: 20210208
  15. PARAFFIN [Concomitant]
     Active Substance: PARAFFIN
     Indication: Rash
     Dosage: UNK UNK, BID
     Route: 062
     Dates: start: 20210208

REACTIONS (14)
  - Drug-induced liver injury [Recovered/Resolved]
  - Malaise [Recovered/Resolved]
  - Drug-induced liver injury [Recovered/Resolved]
  - Taste disorder [Not Recovered/Not Resolved]
  - Taste disorder [Recovered/Resolved]
  - Diarrhoea [Recovered/Resolved]
  - Proteinuria [Recovered/Resolved]
  - Decreased appetite [Recovered/Resolved]
  - Palmar-plantar erythrodysaesthesia syndrome [Recovered/Resolved]
  - Rash [Recovered/Resolved]
  - Platelet count decreased [Recovered/Resolved]
  - Platelet count decreased [Recovered/Resolved]
  - Platelet count decreased [Recovered/Resolved]
  - Inappropriate schedule of product administration [Unknown]

NARRATIVE: CASE EVENT DATE: 20220106
